FAERS Safety Report 6584570-3 (Version None)
Quarter: 2010Q1

REPORT INFORMATION
  Report Type: 
  Country: None (occurrence: None)
  Receive Date: 20100217
  Receipt Date: 20100209
  Transmission Date: 20100710
  Serious: Yes (Life-Threatening, Hospitalization, Other)
  Sender: FDA-Public Use
  Company Number: US-TEVA-224109USA

PATIENT
  Age: 39 Year
  Sex: Female

DRUGS (5)
  1. SERTRALINE HCL [Suspect]
     Route: 048
  2. FENTANYL-100 [Suspect]
     Indication: SEDATION
     Dosage: 2 DOSES OF 25UG 3 MINUTES APART
  3. OCTREOTIDE ACETATE [Concomitant]
     Route: 041
  4. PANTOPRAZOLE [Concomitant]
     Route: 041
  5. MIDAZOLAM HCL [Concomitant]
     Dosage: TWO DOSES OF ONE MILLIGRAM

REACTIONS (2)
  - DRUG INTERACTION [None]
  - SEROTONIN SYNDROME [None]
